FAERS Safety Report 8971270 (Version 2)
Quarter: 2013Q1

REPORT INFORMATION
  Report Type: Spontaneous
  Country: JP (occurrence: JP)
  Receive Date: 20121218
  Receipt Date: 20130128
  Transmission Date: 20140127
  Serious: Yes (Hospitalization)
  Sender: FDA-Public Use
  Company Number: JP-PFIZER INC-2012314148

PATIENT
  Age: 75 Year
  Sex: Male

DRUGS (2)
  1. SPIRONOLACTONE [Suspect]
     Dosage: UNK
     Route: 048
  2. HALFDIGOXIN [Concomitant]
     Route: 048

REACTIONS (3)
  - Hyperkalaemia [Recovered/Resolved]
  - Electrocardiogram QRS complex prolonged [Recovered/Resolved]
  - Device malfunction [Recovered/Resolved]
